FAERS Safety Report 16526424 (Version 1)
Quarter: 2019Q3

REPORT INFORMATION
  Report Type: Spontaneous
  Country: DE (occurrence: DE)
  Receive Date: 20190703
  Receipt Date: 20190703
  Transmission Date: 20191004
  Serious: Yes (Other)
  Sender: FDA-Public Use
  Company Number: DE-MYLANLABS-2019M1061034

PATIENT
  Age: 64 Year
  Sex: Female

DRUGS (1)
  1. METHOTREXATE. [Suspect]
     Active Substance: METHOTREXATE
     Indication: SYSTEMIC LUPUS ERYTHEMATOSUS
     Route: 065
     Dates: end: 2016

REACTIONS (5)
  - Osteomalacia [Recovering/Resolving]
  - Mobility decreased [Recovering/Resolving]
  - Stress fracture [Recovering/Resolving]
  - Osteoporosis [Recovering/Resolving]
  - Weight bearing difficulty [Recovering/Resolving]

NARRATIVE: CASE EVENT DATE: 201202
